FAERS Safety Report 5202830-5 (Version None)
Quarter: 2006Q4

REPORT INFORMATION
  Report Type: 
  Country: None (occurrence: None)
  Receive Date: 20061018
  Receipt Date: 20060511
  Transmission Date: 20070319
  Serious: Yes (Hospitalization)
  Sender: FDA-Public Use
  Company Number: PHEH2006US06274

PATIENT
  Sex: Male

DRUGS (3)
  1. ZOMETA [Suspect]
     Dates: start: 20060501
  2. CASODEX [Suspect]
  3. LUPRON [Suspect]

REACTIONS (2)
  - BLOOD CREATININE INCREASED [None]
  - RENAL FAILURE ACUTE [None]
